FAERS Safety Report 24166957 (Version 1)
Quarter: 2024Q3

REPORT INFORMATION
  Report Type: Spontaneous
  Country: US (occurrence: US)
  Receive Date: 20240802
  Receipt Date: 20240802
  Transmission Date: 20241017
  Serious: No
  Sender: ENDO
  Company Number: ENDB24-00006

PATIENT
  Sex: Male
  Weight: 95.238 kg

DRUGS (15)
  1. EDEX [Suspect]
     Active Substance: ALPROSTADIL
     Indication: Erectile dysfunction
     Dosage: 20 MICROGRAM, UNKNOWN
     Route: 065
  2. EDEX [Suspect]
     Active Substance: ALPROSTADIL
     Indication: Erectile dysfunction
     Dosage: 20 MICROGRAM, UNKNOWN
     Route: 065
  3. EDEX [Suspect]
     Active Substance: ALPROSTADIL
     Indication: Erectile dysfunction
     Dosage: 20 MICROGRAM, UNKNOWN
     Route: 065
  4. EDEX [Suspect]
     Active Substance: ALPROSTADIL
     Indication: Erectile dysfunction
     Dosage: 20 MICROGRAM, UNKNOWN
     Route: 065
  5. EDEX [Suspect]
     Active Substance: ALPROSTADIL
     Indication: Erectile dysfunction
     Dosage: 20 MICROGRAM, UNKNOWN
     Route: 065
  6. EDEX [Suspect]
     Active Substance: ALPROSTADIL
     Dosage: 20 MICROGRAM, UNKNOWN (OTHER DOSE WAS FROM THE BOX THAT WAS THROWN AWAY)
     Route: 065
  7. EDEX [Suspect]
     Active Substance: ALPROSTADIL
     Dosage: 20 MICROGRAM, UNKNOWN (OTHER DOSE WAS FROM THE BOX THAT WAS THROWN AWAY)
     Route: 065
  8. EDEX [Suspect]
     Active Substance: ALPROSTADIL
     Dosage: 20 MICROGRAM, UNKNOWN (OTHER DOSE WAS FROM THE BOX THAT WAS THROWN AWAY)
     Route: 065
  9. EDEX [Suspect]
     Active Substance: ALPROSTADIL
     Dosage: 20 MICROGRAM, UNKNOWN (OTHER DOSE WAS FROM THE BOX THAT WAS THROWN AWAY)
     Route: 065
  10. EDEX [Suspect]
     Active Substance: ALPROSTADIL
     Dosage: 20 MICROGRAM, UNKNOWN (OTHER DOSE WAS FROM THE BOX THAT WAS THROWN AWAY)
     Route: 065
  11. EDEX [Suspect]
     Active Substance: ALPROSTADIL
     Dosage: 20 MICROGRAM, UNKNOWN (OVER A YEAR AGO)
     Route: 065
  12. EDEX [Suspect]
     Active Substance: ALPROSTADIL
     Dosage: 20 MICROGRAM, UNKNOWN (OVER A YEAR AGO)
     Route: 065
  13. EDEX [Suspect]
     Active Substance: ALPROSTADIL
     Dosage: 20 MICROGRAM, UNKNOWN (OVER A YEAR AGO)
     Route: 065
  14. EDEX [Suspect]
     Active Substance: ALPROSTADIL
     Dosage: 20 MICROGRAM, UNKNOWN (OVER A YEAR AGO)
     Route: 065
  15. EDEX [Suspect]
     Active Substance: ALPROSTADIL
     Dosage: 20 MICROGRAM, UNKNOWN (OVER A YEAR AGO)
     Route: 065

REACTIONS (1)
  - Drug ineffective [Unknown]
